FAERS Safety Report 8564791-0 (Version None)
Quarter: 2012Q3

REPORT INFORMATION
  Report Type: 
  Country: None (occurrence: None)
  Receive Date: 20120803
  Receipt Date: 20120726
  Transmission Date: 20120928
  Serious: Yes (Hospitalization)
  Sender: FDA-Public Use
  Company Number: US-US-EMD SERONO, INC.-7148905

PATIENT
  Sex: Male

DRUGS (6)
  1. NORCO [Concomitant]
     Indication: PAIN
     Dosage: 10/325
  2. NEURONTIN [Concomitant]
     Indication: PAIN
  3. FLOMAX [Concomitant]
     Indication: MICTURITION URGENCY
  4. METHADONE HCL [Concomitant]
     Indication: PAIN
  5. REBIF [Suspect]
     Indication: MULTIPLE SCLEROSIS
     Route: 058
     Dates: start: 20120321
  6. TYLENOL (CAPLET) [Concomitant]
     Indication: PREMEDICATION

REACTIONS (2)
  - MUSCULAR WEAKNESS [None]
  - MYELOPATHY [None]
